FAERS Safety Report 23128923 (Version 1)
Quarter: 2023Q4

REPORT INFORMATION
  Report Type: Spontaneous
  Country: JP (occurrence: JP)
  Receive Date: 20231031
  Receipt Date: 20231031
  Transmission Date: 20240110
  Serious: Yes (Other)
  Sender: FDA-Public Use
  Company Number: JP-MYLANLABS-2023M1114501

PATIENT
  Age: 13 Year
  Sex: Male

DRUGS (4)
  1. PREDNISOLONE [Suspect]
     Active Substance: PREDNISOLONE
     Indication: Nephrotic syndrome
     Dosage: UNK
     Route: 065
  2. PREDNISOLONE [Suspect]
     Active Substance: PREDNISOLONE
     Dosage: DECREASED DOSE
     Route: 065
  3. CYCLOSPORINE [Suspect]
     Active Substance: CYCLOSPORINE
     Indication: Nephrotic syndrome
     Dosage: DOSE UNKNOWN; MAINTAINED TROUGH LEVEL OF 60-100 NG/ML
     Route: 065
  4. CYCLOSPORINE [Suspect]
     Active Substance: CYCLOSPORINE
     Dosage: 9.2 MILLIGRAM/KILOGRAM, QD
     Route: 065

REACTIONS (3)
  - Nephrotic syndrome [Recovered/Resolved]
  - Rebound effect [Recovered/Resolved]
  - Chronic active Epstein-Barr virus infection [Recovered/Resolved]
